FAERS Safety Report 8091356-X (Version None)
Quarter: 2012Q1

REPORT INFORMATION
  Report Type: 
  Country: None (occurrence: None)
  Receive Date: 20120129
  Receipt Date: 20111028
  Transmission Date: 20120608
  Serious: No
  Sender: FDA-Public Use
  Company Number: US-ABBOTT-11P-163-0870530-00

PATIENT

DRUGS (3)
  1. HUMIRA [Suspect]
     Indication: OSTEOARTHRITIS
  2. HUMIRA [Suspect]
     Indication: OFF LABEL USE
  3. METHOXTRATE [Concomitant]
     Indication: PRODUCT USED FOR UNKNOWN INDICATION

REACTIONS (2)
  - INSOMNIA [None]
  - OFF LABEL USE [None]
